FAERS Safety Report 19539225 (Version 1)
Quarter: 2021Q3

REPORT INFORMATION
  Report Type: Spontaneous
  Country: US (occurrence: US)
  Receive Date: 20210713
  Receipt Date: 20210713
  Transmission Date: 20211014
  Serious: No
  Sender: FDA-Public Use
  Company Number: US-BEH-2021133896

PATIENT
  Age: 52 Year
  Sex: Female

DRUGS (1)
  1. HIZENTRA [Suspect]
     Active Substance: HUMAN IMMUNOGLOBULIN G
     Indication: HUMORAL IMMUNE DEFECT
     Dosage: 15 GRAM, QW
     Route: 058
     Dates: start: 20210315

REACTIONS (5)
  - Illness [Unknown]
  - Headache [Recovered/Resolved]
  - Swelling [Unknown]
  - Sinus disorder [Unknown]
  - Infusion site mass [Recovered/Resolved]

NARRATIVE: CASE EVENT DATE: 202107
